FAERS Safety Report 8132294-3 (Version None)
Quarter: 2012Q1

REPORT INFORMATION
  Report Type: 
  Country: None (occurrence: None)
  Receive Date: 20120103
  Receipt Date: 20111007
  Transmission Date: 20120608
  Serious: No
  Sender: FDA-Public Use
  Company Number: AE-2011-001605

PATIENT
  Age: 54 Year
  Sex: Female
  Weight: 86.1834 kg

DRUGS (7)
  1. INCIVEK [Suspect]
     Dosage: 2250 MG (750 MG,1 IN 8 HR),ORAL
     Route: 048
     Dates: start: 20110722
  2. AMLODIPINE [Concomitant]
  3. PEGASYS [Concomitant]
  4. LABETALOL HCL [Concomitant]
  5. TRIAMTERENE/HCTZ (DYAZIDE) [Concomitant]
  6. RIBAPHERE (RIBAVIRIN) [Concomitant]
  7. HYDROCODONE BITARTRATE AND ACETAMINOPHEN [Concomitant]

REACTIONS (1)
  - DRUG DOSE OMISSION [None]
